FAERS Safety Report 4919189-0 (Version None)
Quarter: 2006Q1

REPORT INFORMATION
  Report Type: 
  Country: None (occurrence: None)
  Receive Date: 20060113
  Receipt Date: 20051206
  Transmission Date: 20060701
  Serious: No
  Sender: FDA-Public Use
  Company Number: 2005SP004260

PATIENT
  Age: 55 Year
  Sex: Female
  Weight: 102.0593 kg

DRUGS (8)
  1. LUNESTA [Suspect]
     Dosage: 1 MG;HS;ORAL
     Route: 048
     Dates: start: 20051205, end: 20051205
  2. EFFEXOR [Concomitant]
  3. NEURONTIN [Concomitant]
  4. FLUOXETINE HCL [Concomitant]
  5. RISPERDAL [Concomitant]
  6. ZYRTEC [Concomitant]
  7. LEVOXYL [Concomitant]
  8. TRIAMTERENE [Concomitant]

REACTIONS (1)
  - HYPERSENSITIVITY [None]
